FAERS Safety Report 10020067 (Version 13)
Quarter: 2018Q2

REPORT INFORMATION
  Report Type: Spontaneous
  Country: JP (occurrence: JP)
  Receive Date: 20140318
  Receipt Date: 20180424
  Transmission Date: 20180711
  Serious: Yes (Hospitalization, Other)
  Sender: FDA-Public Use
  Company Number: JP-GILEAD-2013-0085003

PATIENT
  Age: 60 Year
  Sex: Male
  Weight: 49 kg

DRUGS (8)
  1. HEPSERA [Suspect]
     Active Substance: ADEFOVIR DIPIVOXIL
     Dosage: UNK, QOD
     Route: 048
     Dates: start: 20080110
  2. HEPSERA [Suspect]
     Active Substance: ADEFOVIR DIPIVOXIL
     Dosage: UNK MG, UNK
     Route: 048
  3. HEPSERA [Suspect]
     Active Substance: ADEFOVIR DIPIVOXIL
     Dosage: UNK MG, UNK
     Route: 048
  4. ZEFIX [Concomitant]
     Active Substance: LAMIVUDINE
     Indication: CHRONIC HEPATITIS B
     Dosage: 100 MG, QD
     Route: 065
     Dates: start: 20061023
  5. HEPSERA [Suspect]
     Active Substance: ADEFOVIR DIPIVOXIL
     Dosage: UNK MG, UNK
     Route: 048
     Dates: start: 20080110
  6. URSO [Concomitant]
     Active Substance: URSODIOL
     Indication: HEPATIC FUNCTION ABNORMAL
     Dosage: 200 MG, TID
     Dates: start: 20061023
  7. HEPSERA [Suspect]
     Active Substance: ADEFOVIR DIPIVOXIL
     Dosage: 10 UNKNOWN, UNK
     Route: 048
     Dates: start: 20080110
  8. HEPSERA [Suspect]
     Active Substance: ADEFOVIR DIPIVOXIL
     Indication: CHRONIC HEPATITIS B
     Dosage: 10 MG, QOD
     Route: 048
     Dates: start: 20080128, end: 20170501

REACTIONS (21)
  - Arthralgia [Recovered/Resolved]
  - Glycosuria [Unknown]
  - Urine phosphorus increased [Unknown]
  - Pathological fracture [Unknown]
  - Proteinuria [Unknown]
  - Urine calcium increased [Unknown]
  - Off label use [Unknown]
  - Renal impairment [Not Recovered/Not Resolved]
  - Blood creatinine increased [Recovering/Resolving]
  - Renal tubular dysfunction [Unknown]
  - Fanconi syndrome acquired [Not Recovered/Not Resolved]
  - Beta 2 microglobulin urine increased [Unknown]
  - Renal glycosuria [Unknown]
  - Hypophosphataemia [Not Recovered/Not Resolved]
  - Blood phosphorus decreased [Not Recovered/Not Resolved]
  - Beta-N-acetyl-D-glucosaminidase increased [Unknown]
  - Osteomalacia [Unknown]
  - Hyperphosphatasaemia [Unknown]
  - Multiple fractures [Recovered/Resolved]
  - Metabolic acidosis [Unknown]
  - Hepatitis B DNA increased [Recovering/Resolving]

NARRATIVE: CASE EVENT DATE: 201308
